FAERS Safety Report 5013138-5 (Version None)
Quarter: 2006Q2

REPORT INFORMATION
  Report Type: 
  Country: None (occurrence: None)
  Receive Date: 20060530
  Receipt Date: 20060306
  Transmission Date: 20061013
  Serious: Yes (Other)
  Sender: FDA-Public Use
  Company Number: 0015125

PATIENT
  Age: 48 Year
  Sex: Male

DRUGS (3)
  1. WELLBUTRIN XL [Suspect]
     Indication: PANIC ATTACK
     Dosage: 300MG PER DAY
     Route: 048
     Dates: end: 20060303
  2. ZOLOFT [Concomitant]
  3. KLONOPIN [Concomitant]

REACTIONS (1)
  - CONVULSION [None]
